FAERS Safety Report 7602569-2 (Version None)
Quarter: 2011Q3

REPORT INFORMATION
  Report Type: 
  Country: None (occurrence: None)
  Receive Date: 20110707
  Receipt Date: 20110524
  Transmission Date: 20111222
  Serious: Yes (Hospitalization, Other)
  Sender: FDA-Public Use
  Company Number: US-CYPR-2011-000007

PATIENT
  Sex: Male
  Weight: 99.7913 kg

DRUGS (12)
  1. NIFEDIPINE [Concomitant]
  2. HYDROCHLOROTHIAZIDE [Concomitant]
  3. CLOPIDOGREL [Suspect]
     Indication: ANTIPLATELET THERAPY
     Dosage: (75 MG QD ORAL) ; (75 MG QD ORAL)
     Route: 048
     Dates: start: 20110118, end: 20110323
  4. CLOPIDOGREL [Suspect]
     Indication: ANTIPLATELET THERAPY
     Dosage: (75 MG QD ORAL) ; (75 MG QD ORAL)
     Route: 048
     Dates: start: 20110328
  5. SIMVASTATIN [Concomitant]
  6. ASPIRIN [Suspect]
     Indication: CORONARY ARTERY DISEASE
     Dosage: (81 MG QD ORAL) ; (81 MG QD ORAL)
     Route: 048
     Dates: start: 20110328
  7. ASPIRIN [Suspect]
     Indication: CORONARY ARTERY DISEASE
     Dosage: (81 MG QD ORAL) ; (81 MG QD ORAL)
     Route: 048
     Dates: start: 20100125, end: 20110325
  8. CLOPIDOGREL [Suspect]
     Indication: ANTIPLATELET THERAPY
     Dosage: (75 MG QD ORAL)
     Route: 048
     Dates: start: 20110324, end: 20110325
  9. CAPTOPRIL [Concomitant]
  10. METOPROLOL TARTRATE [Concomitant]
  11. OMEPRAZOLE [Concomitant]
  12. CYPHER STENT [Concomitant]

REACTIONS (3)
  - AORTIC ANEURYSM [None]
  - HAEMATURIA [None]
  - EPISTAXIS [None]
